FAERS Safety Report 4744490-3 (Version None)
Quarter: 2005Q3

REPORT INFORMATION
  Report Type: 
  Country: None (occurrence: None)
  Receive Date: 20050811
  Receipt Date: 20050811
  Transmission Date: 20060218
  Serious: No
  Sender: FDA-Public Use
  Company Number: None

PATIENT
  Sex: Male
  Weight: 78.9259 kg

DRUGS (1)
  1. TESTIM [Suspect]
     Indication: KLINEFELTER'S SYNDROME
     Dosage: 5MG TOPICAL QD
     Route: 061
     Dates: start: 20050601, end: 20050604

REACTIONS (1)
  - URTICARIA [None]
